FAERS Safety Report 9307683 (Version 2)
Quarter: 2013Q2

REPORT INFORMATION
  Report Type: Spontaneous
  Country: US (occurrence: US)
  Receive Date: 20130524
  Receipt Date: 20130524
  Transmission Date: 20140414
  Serious: Yes (Hospitalization)
  Sender: FDA-Public Use
  Company Number: US-SANOFI-AVENTIS-2013SA050528

PATIENT
  Age: 56 Year
  Sex: Male

DRUGS (26)
  1. INSULIN GLARGINE [Suspect]
     Indication: TYPE 2 DIABETES MELLITUS
     Dosage: DOSE:3300 UNIT(S)
     Route: 058
  2. INSULIN GLARGINE [Suspect]
     Indication: SUICIDE ATTEMPT
     Dosage: DOSE:3300 UNIT(S)
     Route: 058
  3. INSULIN GLARGINE [Suspect]
     Indication: TYPE 2 DIABETES MELLITUS
     Route: 058
  4. INSULIN GLARGINE [Suspect]
     Indication: SUICIDE ATTEMPT
     Route: 058
  5. INSULIN PEN NOS [Suspect]
     Indication: DEVICE THERAPY
  6. INSULIN PEN NOS [Suspect]
     Indication: DEVICE THERAPY
  7. ISOSORBIDE DINITRATE [Suspect]
     Indication: PRODUCT USED FOR UNKNOWN INDICATION
     Route: 065
  8. ISOSORBIDE DINITRATE [Suspect]
     Indication: SUICIDE ATTEMPT
     Route: 065
  9. ISOSORBIDE DINITRATE [Suspect]
     Indication: PRODUCT USED FOR UNKNOWN INDICATION
     Dosage: LESS THAN 5 TABLETS
     Route: 065
  10. ISOSORBIDE DINITRATE [Suspect]
     Indication: SUICIDE ATTEMPT
     Dosage: LESS THAN 5 TABLETS
     Route: 065
  11. FUROSEMIDE [Suspect]
     Indication: PRODUCT USED FOR UNKNOWN INDICATION
     Route: 065
  12. FUROSEMIDE [Suspect]
     Indication: SUICIDE ATTEMPT
     Route: 065
  13. FUROSEMIDE [Suspect]
     Indication: PRODUCT USED FOR UNKNOWN INDICATION
     Dosage: LESS THAN 5 TABLETS
     Route: 065
  14. FUROSEMIDE [Suspect]
     Indication: SUICIDE ATTEMPT
     Dosage: LESS THAN 5 TABLETS
     Route: 065
  15. LISINOPRIL [Suspect]
     Indication: PRODUCT USED FOR UNKNOWN INDICATION
     Route: 065
  16. LISINOPRIL [Suspect]
     Indication: SUICIDE ATTEMPT
     Route: 065
  17. LISINOPRIL [Suspect]
     Indication: PRODUCT USED FOR UNKNOWN INDICATION
     Dosage: LESS THAN 5 TABLETS
     Route: 065
  18. LISINOPRIL [Suspect]
     Indication: SUICIDE ATTEMPT
     Dosage: LESS THAN 5 TABLETS
     Route: 065
  19. METOPROLOL SALT NOT SPECIFIED [Suspect]
     Indication: PRODUCT USED FOR UNKNOWN INDICATION
     Dosage: UPTO 500 MG
     Route: 065
  20. METOPROLOL SALT NOT SPECIFIED [Suspect]
     Indication: SUICIDE ATTEMPT
     Dosage: UPTO 500 MG
     Route: 065
  21. METOPROLOL SALT NOT SPECIFIED [Suspect]
     Indication: PRODUCT USED FOR UNKNOWN INDICATION
     Route: 065
  22. METOPROLOL SALT NOT SPECIFIED [Suspect]
     Indication: SUICIDE ATTEMPT
     Route: 065
  23. DIPHENHYDRAMINE [Suspect]
     Indication: PRODUCT USED FOR UNKNOWN INDICATION
     Route: 065
  24. DIPHENHYDRAMINE [Suspect]
     Indication: SUICIDE ATTEMPT
     Route: 065
  25. DIPHENHYDRAMINE [Suspect]
     Indication: PRODUCT USED FOR UNKNOWN INDICATION
     Dosage: UPTO 1.2 G
     Route: 065
  26. DIPHENHYDRAMINE [Suspect]
     Indication: SUICIDE ATTEMPT
     Dosage: UPTO 1.2 G
     Route: 065

REACTIONS (6)
  - Suicide attempt [Unknown]
  - Intentional overdose [Unknown]
  - Hypoglycaemia [Recovered/Resolved]
  - Somnolence [Unknown]
  - Heart rate decreased [Unknown]
  - Hypotension [Unknown]
